FAERS Safety Report 15937544 (Version 1)
Quarter: 2019Q1

REPORT INFORMATION
  Report Type: Spontaneous
  Country: CN (occurrence: CN)
  Receive Date: 20190208
  Receipt Date: 20190208
  Transmission Date: 20190417
  Serious: Yes (Other)
  Sender: FDA-Public Use
  Company Number: CN-ROCHE-2261250

PATIENT
  Age: 66 Year
  Sex: Male
  Weight: 60 kg

DRUGS (1)
  1. ACTILYSE [Suspect]
     Active Substance: ALTEPLASE
     Indication: CEREBRAL INFARCTION
     Route: 041
     Dates: start: 20181210, end: 20181210

REACTIONS (3)
  - Anaphylactic shock [Recovered/Resolved]
  - Nausea [Recovered/Resolved]
  - Vomiting [Recovered/Resolved]

NARRATIVE: CASE EVENT DATE: 20181210
